FAERS Safety Report 4895981-6 (Version None)
Quarter: 2006Q1

REPORT INFORMATION
  Report Type: 
  Country: None (occurrence: None)
  Receive Date: 20060125
  Receipt Date: 20060113
  Transmission Date: 20060701
  Serious: Yes (Other)
  Sender: FDA-Public Use
  Company Number: PERC20050055

PATIENT
  Age: 42 Year
  Sex: Female
  Weight: 83.9154 kg

DRUGS (9)
  1. PERCOCET [Suspect]
     Indication: FIBROMYALGIA
     Dosage: 8 TABS DAILY PO
     Route: 048
     Dates: start: 20040101
  2. OXYCODONE IR 15 MG [Suspect]
     Indication: FIBROMYALGIA
     Dosage: 8 TABS DAILY PO
     Route: 048
     Dates: start: 20040101
  3. AMBIEN [Suspect]
     Indication: INSOMNIA
     Dosage: 10 MG QHS PO
     Route: 048
     Dates: start: 20010101
  4. ZANAFLEX [Suspect]
     Indication: PAIN
     Dosage: 4 MG QHS PO
     Route: 048
     Dates: start: 20010101
  5. VITAMINS [Concomitant]
  6. MECLIZINE [Suspect]
     Indication: DIZZINESS
     Dosage: 1 TAB PRN PO
     Route: 048
     Dates: start: 20050101
  7. KLONOPIN [Concomitant]
  8. IRON SUPPLEMENT [Concomitant]
  9. VITAMINS [Concomitant]

REACTIONS (10)
  - DRUG EXPOSURE DURING PREGNANCY [None]
  - DRUG WITHDRAWAL SYNDROME [None]
  - HYPOMENORRHOEA [None]
  - INTRA-UTERINE DEATH [None]
  - MALABSORPTION [None]
  - OLIGOMENORRHOEA [None]
  - OVERDOSE [None]
  - PAIN [None]
  - SEDATION [None]
  - TWIN PREGNANCY [None]
